FAERS Safety Report 4432283-6 (Version None)
Quarter: 2004Q3

REPORT INFORMATION
  Report Type: 
  Country: None (occurrence: None)
  Receive Date: 20040820
  Receipt Date: 20040810
  Transmission Date: 20050211
  Serious: Yes (Other)
  Sender: FDA-Public Use
  Company Number: 2004055018

PATIENT
  Age: 70 Year
  Sex: Male
  Weight: 80 kg

DRUGS (3)
  1. AMLODIPINE [Suspect]
     Indication: HYPERTENSION
     Dates: start: 20020601, end: 20030701
  2. NORTRIPTYLINE HCL [Concomitant]
  3. DIAZEPAM [Concomitant]

REACTIONS (5)
  - CONTUSION [None]
  - DECREASED ACTIVITY [None]
  - DIFFICULTY IN WALKING [None]
  - EXCORIATION [None]
  - SWELLING [None]
